FAERS Safety Report 5408498-7 (Version None)
Quarter: 2007Q3

REPORT INFORMATION
  Report Type: 
  Country: None (occurrence: None)
  Receive Date: 20070806
  Receipt Date: 20070726
  Transmission Date: 20080115
  Serious: Yes (Other)
  Sender: FDA-Public Use
  Company Number: CHPA2007US08158

PATIENT
  Age: 47 Year
  Sex: Female
  Weight: 99.8 kg

DRUGS (1)
  1. EXCEDRIN (MIGRAINE) [Suspect]
     Indication: MIGRAINE
     Dosage: 2 DF, ONCE/SINGLE; ORAL
     Route: 048
     Dates: start: 20070725, end: 20070725

REACTIONS (6)
  - ERYTHEMA [None]
  - LIP SWELLING [None]
  - PHARYNGEAL OEDEMA [None]
  - PRURITUS [None]
  - SWELLING FACE [None]
  - URTICARIA [None]
